FAERS Safety Report 6315674-8 (Version None)
Quarter: 2009Q3

REPORT INFORMATION
  Report Type: 
  Country: None (occurrence: None)
  Receive Date: 20090818
  Receipt Date: 20090810
  Transmission Date: 20100115
  Serious: Yes (Disabling, Other)
  Sender: FDA-Public Use
  Company Number: 2009SP018393

PATIENT
  Age: 54 Year
  Sex: Male

DRUGS (1)
  1. PEG-INTRON [Suspect]
     Indication: HEPATITIS C
     Dates: start: 20090508, end: 20090720

REACTIONS (9)
  - CONSTIPATION [None]
  - DEPRESSION [None]
  - DYSURIA [None]
  - EATING DISORDER [None]
  - FATIGUE [None]
  - IMPAIRED WORK ABILITY [None]
  - INSOMNIA [None]
  - SOMNOLENCE [None]
  - SPEECH DISORDER [None]
